FAERS Safety Report 18307916 (Version 4)
Quarter: 2021Q1

REPORT INFORMATION
  Report Type: Report from Study
  Country: BR (occurrence: BR)
  Receive Date: 20200924
  Receipt Date: 20210315
  Transmission Date: 20210419
  Serious: Yes (Death, Hospitalization, Other)
  Sender: FDA-Public Use
  Company Number: BR-PFIZER INC-2020366744

PATIENT
  Age: 33 Year
  Sex: Female
  Weight: 93.5 kg

DRUGS (5)
  1. MYLOTARG [Suspect]
     Active Substance: GEMTUZUMAB OZOGAMICIN
     Indication: ACUTE MYELOID LEUKAEMIA RECURRENT
     Dosage: 3 MG/M2 (DAILY DOSE 5.76 MG) ON D1
     Route: 042
     Dates: start: 20200914, end: 20200914
  2. MITOXANTRONE [Concomitant]
     Active Substance: MITOXANTRONE HYDROCHLORIDE
     Indication: ACUTE MYELOID LEUKAEMIA RECURRENT
     Dosage: 6 MG/M2 DURING 5 DAYS
     Dates: start: 20200909, end: 20200913
  3. ETOPOSIDE. [Concomitant]
     Active Substance: ETOPOSIDE
     Indication: ACUTE MYELOID LEUKAEMIA RECURRENT
     Dosage: 80 MG/M2 DURING 5 DAYS
     Dates: start: 20200909, end: 20200913
  4. G?CSF [Concomitant]
     Active Substance: GRANULOCYTE COLONY-STIMULATING FACTOR NOS
     Dosage: UNK
     Dates: start: 20200916
  5. CYTARABINE. [Suspect]
     Active Substance: CYTARABINE
     Indication: ACUTE MYELOID LEUKAEMIA RECURRENT
     Dosage: 1 G/M2 DURING 5 DAYS
     Dates: start: 20200909, end: 20200913

REACTIONS (11)
  - Neutropenia [Recovered/Resolved]
  - Abdominal pain [Unknown]
  - Multiple organ dysfunction syndrome [Fatal]
  - Klebsiella sepsis [Recovered/Resolved]
  - Device related infection [Recovered/Resolved]
  - Acinetobacter sepsis [Unknown]
  - Klebsiella sepsis [Fatal]
  - Enterobacter sepsis [Unknown]
  - C-reactive protein increased [Unknown]
  - Mucosal inflammation [Unknown]
  - Device related infection [Fatal]

NARRATIVE: CASE EVENT DATE: 20200916
